FAERS Safety Report 7315146-8 (Version None)
Quarter: 2011Q1

REPORT INFORMATION
  Report Type: 
  Country: None (occurrence: None)
  Receive Date: 20110225
  Receipt Date: 20110218
  Transmission Date: 20110831
  Serious: Yes (Other)
  Sender: FDA-Public Use
  Company Number: US-B.I. PHARMACEUTICALS,INC./RIDGEFIELD-2011-BP-04923BP

PATIENT
  Age: 67 Year
  Sex: Female
  Weight: 86.18 kg

DRUGS (7)
  1. GLUCOSAMINE/CHONDROITIN [Concomitant]
     Indication: ARTHROPATHY
  2. ASPIRIN [Concomitant]
     Dosage: 81 MG
  3. LISINOPRIL [Concomitant]
     Indication: HYPERTENSION
  4. OMEGA 3 FATTY ACIDS [Concomitant]
  5. VITAMIN TAB [Concomitant]
  6. MOBIC [Suspect]
     Indication: ARTHRITIS
  7. CELEBREX [Suspect]
     Indication: ARTHRITIS
     Dosage: 200 MG
     Route: 048

REACTIONS (2)
  - BLOOD CHOLESTEROL INCREASED [None]
  - ARTHRALGIA [None]
